FAERS Safety Report 9656765 (Version 1)
Quarter: 2013Q4

REPORT INFORMATION
  Report Type: Spontaneous
  Country: US (occurrence: None)
  Receive Date: 20131029
  Receipt Date: 20131029
  Transmission Date: 20140711
  Serious: Yes (Hospitalization)
  Sender: FDA-Public Use
  Company Number: None

PATIENT
  Age: 71 Year
  Sex: Male
  Weight: 87.4 kg

DRUGS (1)
  1. CALCIUM CARBONATE [Suspect]
     Indication: PAIN
     Route: 048
     Dates: end: 20130816

REACTIONS (5)
  - Milk-alkali syndrome [None]
  - Mental status changes [None]
  - Incorrect dose administered [None]
  - Blood calcium increased [None]
  - Blood calcium decreased [None]
